FAERS Safety Report 10228719 (Version 1)
Quarter: 2014Q2

REPORT INFORMATION
  Report Type: Spontaneous
  Country: DE (occurrence: DE)
  Receive Date: 20140610
  Receipt Date: 20140610
  Transmission Date: 20141212
  Serious: Yes (Other)
  Sender: FDA-Public Use
  Company Number: DE-WATSON-2014-11866

PATIENT
  Age: 51 Year
  Sex: Male

DRUGS (4)
  1. PAROXETINE (UNKNOWN) [Suspect]
     Indication: PRODUCT USED FOR UNKNOWN INDICATION
     Dosage: 10 MG, DAILY
     Route: 048
     Dates: start: 20130514
  2. PAROXETINE (UNKNOWN) [Suspect]
     Dosage: 40-20 MG DAILY
     Route: 048
     Dates: start: 20130513
  3. PAROXETINE (UNKNOWN) [Suspect]
     Dosage: 0-40 MG DAILY
     Route: 048
     Dates: start: 201302, end: 20130512
  4. CITALOPRAM (UNKNOWN) [Suspect]
     Indication: PRODUCT USED FOR UNKNOWN INDICATION
     Dosage: UNKNOWN
     Route: 065

REACTIONS (3)
  - Restless legs syndrome [Recovered/Resolved]
  - Sleep disorder [Recovered/Resolved]
  - Fatigue [Recovered/Resolved]
